FAERS Safety Report 10285905 (Version 4)
Quarter: 2014Q4

REPORT INFORMATION
  Report Type: Spontaneous
  Country: US (occurrence: None)
  Receive Date: 20140703
  Receipt Date: 20141009
  Transmission Date: 20150528
  Serious: Yes (Hospitalization, Other)
  Sender: FDA-Public Use
  Company Number: UNT-2014-002667

PATIENT
  Age: 60 Year
  Sex: Female
  Weight: 138.9 kg

DRUGS (2)
  1. REMODULIN [Suspect]
     Active Substance: TREPROSTINIL
     Indication: PULMONARY ARTERIAL HYPERTENSION
     Route: 041
     Dates: start: 20100820
  2. REVATIO (SILDENAFIL CITRATE) [Concomitant]

REACTIONS (6)
  - Pulmonary embolism [None]
  - Cardiac disorder [None]
  - Respiratory failure [None]
  - Femur fracture [None]
  - Fall [None]
  - Gastrointestinal haemorrhage [None]

NARRATIVE: CASE EVENT DATE: 2014
